FAERS Safety Report 6087812-6 (Version None)
Quarter: 2009Q1

REPORT INFORMATION
  Report Type: 
  Country: None (occurrence: None)
  Receive Date: 20090223
  Receipt Date: 20090216
  Transmission Date: 20090719
  Serious: Yes (Hospitalization, Other)
  Sender: FDA-Public Use
  Company Number: US-ABBOTT-08P-163-0489435-00

PATIENT
  Sex: Female
  Weight: 51.756 kg

DRUGS (10)
  1. HUMIRA [Suspect]
     Indication: CROHN'S DISEASE
     Route: 058
     Dates: start: 20080929, end: 20081125
  2. HUMIRA [Suspect]
     Dates: start: 20081208
  3. SYNTHROID [Concomitant]
     Indication: HYPOTHYROIDISM
     Route: 048
     Dates: start: 19990101
  4. ACIPHEX [Concomitant]
     Indication: GASTRIC ULCER
     Dates: start: 20070101
  5. CLONAZEPAM [Concomitant]
     Indication: ANXIETY
  6. TYLENOL [Concomitant]
     Indication: ABDOMINAL PAIN
  7. HYDROCODONE [Concomitant]
     Indication: PAIN
     Dates: start: 20081220
  8. CALCIUM [Concomitant]
     Indication: DRUG USE FOR UNKNOWN INDICATION
  9. VITAMIN D [Concomitant]
     Indication: DRUG USE FOR UNKNOWN INDICATION
  10. MULTI-VITAMIN [Concomitant]
     Indication: DRUG USE FOR UNKNOWN INDICATION

REACTIONS (19)
  - ABDOMINAL DISCOMFORT [None]
  - ANAL ABSCESS [None]
  - ASTHENIA [None]
  - BLOOD COUNT ABNORMAL [None]
  - DYSPEPSIA [None]
  - ERUCTATION [None]
  - FEELING ABNORMAL [None]
  - FLATULENCE [None]
  - HAEMATOCHEZIA [None]
  - INJECTION SITE ERYTHEMA [None]
  - INJECTION SITE HAEMATOMA [None]
  - INJECTION SITE WARMTH [None]
  - INTESTINAL MASS [None]
  - LOCAL SWELLING [None]
  - MALAISE [None]
  - NAUSEA [None]
  - RECTAL DISCHARGE [None]
  - RECTAL TENESMUS [None]
  - TREMOR [None]
